FAERS Safety Report 4667564-4 (Version None)
Quarter: 2005Q2

REPORT INFORMATION
  Report Type: 
  Country: None (occurrence: None)
  Receive Date: 20050520
  Receipt Date: 20041115
  Transmission Date: 20051028
  Serious: Yes (Other)
  Sender: FDA-Public Use
  Company Number: PHEH2004US12407

PATIENT
  Age: 78 Year
  Sex: Male

DRUGS (3)
  1. ZOMETA [Suspect]
     Indication: METASTASES TO BONE
     Dosage: 4MG MONTHLY
     Route: 042
  2. DECADRON [Suspect]
     Dosage: 40 MG Q 10 DAYS
  3. EPOGEN [Concomitant]

REACTIONS (3)
  - FISTULA [None]
  - JAW DISORDER [None]
  - OSTEONECROSIS [None]
